FAERS Safety Report 19445684 (Version 1)
Quarter: 2021Q2

REPORT INFORMATION
  Report Type: Spontaneous
  Country: US (occurrence: US)
  Receive Date: 20210622
  Receipt Date: 20210622
  Transmission Date: 20210717
  Serious: Yes (Other)
  Sender: FDA-Public Use
  Company Number: US-GLAXOSMITHKLINE-US2021129065

PATIENT
  Sex: Female

DRUGS (1)
  1. BENLYSTA [Suspect]
     Active Substance: BELIMUMAB
     Indication: PRODUCT USED FOR UNKNOWN INDICATION
     Dosage: UNK
     Dates: start: 2018

REACTIONS (6)
  - Exposure via skin contact [Unknown]
  - Incorrect dose administered [Unknown]
  - Lupus nephritis [Unknown]
  - Device use error [Unknown]
  - Injection site bruising [Unknown]
  - Injection site pain [Unknown]
